FAERS Safety Report 6160269-2 (Version None)
Quarter: 2009Q2

REPORT INFORMATION
  Report Type: 
  Country: None (occurrence: None)
  Receive Date: 20090420
  Receipt Date: 20090409
  Transmission Date: 20091009
  Serious: Yes (Other)
  Sender: FDA-Public Use
  Company Number: JP-ASTRAZENECA-2009AC01091

PATIENT
  Age: 72 Year
  Sex: Male

DRUGS (1)
  1. MEROPEN [Suspect]
     Indication: LIVER ABSCESS

REACTIONS (4)
  - EOSINOPHIL COUNT INCREASED [None]
  - HEPATIC FUNCTION ABNORMAL [None]
  - RASH [None]
  - WHITE BLOOD CELL COUNT INCREASED [None]
